FAERS Safety Report 4447242-7 (Version None)
Quarter: 2004Q3

REPORT INFORMATION
  Report Type: 
  Country: None (occurrence: None)
  Receive Date: 20040908
  Receipt Date: 20040908
  Transmission Date: 20050211
  Serious: Yes (Hospitalization)
  Sender: FDA-Public Use
  Company Number: None

PATIENT
  Age: 42 Year
  Sex: Male

DRUGS (10)
  1. LISPRO INSULIN [Suspect]
     Indication: DIABETES MELLITUS INSULIN-DEPENDENT
  2. INSULIN REG [Concomitant]
  3. MINOXIDIL [Concomitant]
  4. OMEPRAZOLE [Concomitant]
  5. VITAMIN C [Concomitant]
  6. CLONIDINE HCL [Concomitant]
  7. FOSINOPRIL SODIUM [Concomitant]
  8. LABETALOL HCL [Concomitant]
  9. TRAZODONE [Concomitant]
  10. SEVELAMEN [Concomitant]

REACTIONS (1)
  - HYPOGLYCAEMIA [None]
